FAERS Safety Report 10400660 (Version 2)
Quarter: 2016Q3

REPORT INFORMATION
  Report Type: Spontaneous
  Country: US (occurrence: US)
  Receive Date: 20140821
  Receipt Date: 20160817
  Transmission Date: 20161109
  Serious: No
  Sender: FDA-Public Use
  Company Number: US-ASTRAZENECA-2013SE93701

PATIENT
  Age: 69 Year
  Sex: Female
  Weight: 45.4 kg

DRUGS (7)
  1. TUDORZA PRESSAIR [Suspect]
     Active Substance: ACLIDINIUM BROMIDE
     Dosage: PRESCRIBED TUDORZA PRESSAIR 400 MCG ONE PUFF TWICE A DAY BUT TAKES IT ONE PUFF ONCE A DAY
     Route: 055
  2. SYMBICORT [Suspect]
     Active Substance: BUDESONIDE\FORMOTEROL FUMARATE DIHYDRATE
     Indication: CHRONIC OBSTRUCTIVE PULMONARY DISEASE
     Dosage: 2 PUFFS, TWO TIMES A DAY
     Route: 055
     Dates: start: 2010
  3. TUDORZA PRESSAIR [Suspect]
     Active Substance: ACLIDINIUM BROMIDE
     Dosage: NEEDS TWO INHALATIONS ONCE IN A GREAT WHILE WHEN SHE GETS BAD
     Route: 055
  4. XOPENEX [Concomitant]
     Active Substance: LEVALBUTEROL HYDROCHLORIDE
     Indication: DYSPNOEA
     Dosage: 2 PUFFS TWICE A DAY, AS NEEDED
  5. OXYGEN. [Concomitant]
     Active Substance: OXYGEN
  6. SYMBICORT [Suspect]
     Active Substance: BUDESONIDE\FORMOTEROL FUMARATE DIHYDRATE
     Indication: ASTHMA
     Dosage: 2 PUFFS, TWO TIMES A DAY
     Route: 055
     Dates: start: 2010
  7. PROAIR HFA [Concomitant]
     Active Substance: ALBUTEROL SULFATE
     Indication: PRODUCT USED FOR UNKNOWN INDICATION
     Dosage: 2 PUFFS, TWICE A DAY

REACTIONS (4)
  - Dyspnoea [Unknown]
  - Product use issue [Unknown]
  - Tremor [Unknown]
  - Intentional product misuse [Unknown]
